FAERS Safety Report 7273240-4 (Version None)
Quarter: 2011Q1

REPORT INFORMATION
  Report Type: 
  Country: None (occurrence: None)
  Receive Date: 20110203
  Receipt Date: 20110121
  Transmission Date: 20110831
  Serious: Yes (Other)
  Sender: FDA-Public Use
  Company Number: IE-ELI_LILLY_AND_COMPANY-IE201101005991

PATIENT
  Age: 50 Year
  Sex: Male

DRUGS (1)
  1. CYMBALTA [Suspect]
     Dosage: 60 MG, DAILY (1/D)

REACTIONS (5)
  - IRRITABILITY [None]
  - PARAESTHESIA [None]
  - FATIGUE [None]
  - DRUG WITHDRAWAL SYNDROME [None]
  - MALAISE [None]
